FAERS Safety Report 5335620-3 (Version None)
Quarter: 2007Q2

REPORT INFORMATION
  Report Type: 
  Country: None (occurrence: None)
  Receive Date: 20070322
  Receipt Date: 20070115
  Transmission Date: 20071010
  Serious: No
  Sender: FDA-Public Use
  Company Number: 2007US000148

PATIENT
  Age: 63 Year
  Sex: Female

DRUGS (10)
  1. VESICARE [Suspect]
     Indication: HYPERTONIC BLADDER
     Dosage: 10 MG, ORAL
     Route: 048
  2. PRAVACHOL [Concomitant]
  3. TOPROL-XL [Concomitant]
  4. ALLERGRA (FEOXFENADINE HYDROCHLORIDE) [Concomitant]
  5. HYDROCHLOROTHIAZIDE [Concomitant]
  6. LEVOXYL [Concomitant]
  7. PROZAC [Concomitant]
  8. LISINOPRIL (LISINOPRIL DIHYDRATE) [Concomitant]
  9. CELEBREX [Concomitant]
  10. HORMONES AND RELATED AGENTS [Concomitant]

REACTIONS (1)
  - CONDITION AGGRAVATED [None]
